FAERS Safety Report 7095648-2 (Version None)
Quarter: 2010Q4

REPORT INFORMATION
  Report Type: 
  Country: None (occurrence: None)
  Receive Date: 20101111
  Receipt Date: 20101028
  Transmission Date: 20110411
  Serious: Yes (Other)
  Sender: FDA-Public Use
  Company Number: PHHY2010US70426

PATIENT
  Age: 50 Year
  Sex: Female

DRUGS (4)
  1. RECLAST [Suspect]
     Indication: OSTEOPOROSIS POSTMENOPAUSAL
     Dosage: 5 MG PER 100 ML
     Route: 042
     Dates: start: 20100910
  2. RECLAST [Suspect]
     Indication: OSTEOPOROSIS
  3. CRESTOR [Concomitant]
     Indication: BLOOD CHOLESTEROL INCREASED
     Dosage: 5MG
     Route: 048
     Dates: start: 20090601
  4. MOTRIN [Concomitant]
     Dosage: 200 MG,
     Route: 048
     Dates: start: 20100908

REACTIONS (5)
  - PRURITUS [None]
  - RASH [None]
  - RASH GENERALISED [None]
  - RASH MACULO-PAPULAR [None]
  - URTICARIA [None]
